FAERS Safety Report 24180565 (Version 1)
Quarter: 2024Q3

REPORT INFORMATION
  Report Type: Spontaneous
  Country: CA (occurrence: CA)
  Receive Date: 20240806
  Receipt Date: 20240806
  Transmission Date: 20241016
  Serious: Yes (Disabling, Other)
  Sender: MERCK
  Company Number: CA-009507513-2408CAN000760

PATIENT
  Age: 73 Year
  Sex: Male
  Weight: 87 kg

DRUGS (1)
  1. KEYTRUDA [Suspect]
     Active Substance: PEMBROLIZUMAB
     Indication: Non-small cell lung cancer
     Dosage: 179.0 MILLIGRAM, CYCLICAL
     Route: 042

REACTIONS (1)
  - Mononeuropathy multiplex [Not Recovered/Not Resolved]
